FAERS Safety Report 24997145 (Version 2)
Quarter: 2025Q3

REPORT INFORMATION
  Report Type: Spontaneous
  Country: US (occurrence: US)
  Receive Date: 20250221
  Receipt Date: 20250816
  Transmission Date: 20251021
  Serious: No
  Sender: ALEXION PHARMACEUTICALS
  Company Number: US-AstraZeneca-CH-00809189A

PATIENT
  Sex: Female

DRUGS (1)
  1. FARXIGA [Suspect]
     Active Substance: DAPAGLIFLOZIN PROPANEDIOL
     Route: 065
     Dates: start: 20241023, end: 20250201

REACTIONS (4)
  - Urinary tract infection [Unknown]
  - Antibiotic level therapeutic [Unknown]
  - Abdominal pain upper [Unknown]
  - Ill-defined disorder [Unknown]
